FAERS Safety Report 9767035 (Version 1)
Quarter: 2013Q4

REPORT INFORMATION
  Report Type: Spontaneous
  Country: US (occurrence: US)
  Receive Date: 20131217
  Receipt Date: 20131217
  Transmission Date: 20140711
  Serious: No
  Sender: FDA-Public Use
  Company Number: US-GLAXOSMITHKLINE-A1037375A

PATIENT
  Sex: Female

DRUGS (1)
  1. VOTRIENT [Suspect]
     Indication: CHRONIC MYELOID LEUKAEMIA
     Dosage: 400MG PER DAY
     Route: 065

REACTIONS (8)
  - Dyspepsia [Unknown]
  - Fatigue [Unknown]
  - Alopecia [Unknown]
  - Sinus disorder [Unknown]
  - Diarrhoea [Unknown]
  - Blood pressure increased [Unknown]
  - Headache [Unknown]
  - Adverse drug reaction [Unknown]
